FAERS Safety Report 8293367-8 (Version None)
Quarter: 2012Q2

REPORT INFORMATION
  Report Type: 
  Country: None (occurrence: None)
  Receive Date: 20120417
  Receipt Date: 20120222
  Transmission Date: 20120825
  Serious: No
  Sender: FDA-Public Use
  Company Number: US-ASTRAZENECA-2011SE01977

PATIENT
  Age: 80 Year
  Sex: Female

DRUGS (1)
  1. NEXIUM [Suspect]
     Route: 048

REACTIONS (7)
  - SINUSITIS [None]
  - MALAISE [None]
  - ULCER [None]
  - HEARING IMPAIRED [None]
  - BRONCHITIS [None]
  - NASOPHARYNGITIS [None]
  - EAR DISCOMFORT [None]
